FAERS Safety Report 22201153 (Version 2)
Quarter: 2023Q4

REPORT INFORMATION
  Report Type: Spontaneous
  Country: US (occurrence: US)
  Receive Date: 20230412
  Receipt Date: 20231011
  Transmission Date: 20240110
  Serious: No
  Sender: FDA-Public Use
  Company Number: US-BRISTOL-MYERS SQUIBB COMPANY-2023-048668

PATIENT
  Age: 70 Year
  Sex: Female

DRUGS (1)
  1. LENALIDOMIDE [Suspect]
     Active Substance: LENALIDOMIDE
     Indication: Plasma cell myeloma
     Dosage: FREQUENCY: TAKE 1 CAPSULE BY MOUTH EVERY DAY.?TAKE 1 CAPSULE BY MOUTH EVERY DAY FOR 28 DAYS. DO NOT
     Route: 048
     Dates: start: 20230227

REACTIONS (2)
  - Treatment noncompliance [Unknown]
  - Dysphonia [Not Recovered/Not Resolved]
